FAERS Safety Report 8247128-6 (Version None)
Quarter: 2012Q1

REPORT INFORMATION
  Report Type: 
  Country: None (occurrence: None)
  Receive Date: 20120330
  Receipt Date: 20120320
  Transmission Date: 20120608
  Serious: Yes (Other)
  Sender: FDA-Public Use
  Company Number: CA-ROCHE-1051041

PATIENT
  Sex: Female
  Weight: 69.916 kg

DRUGS (7)
  1. ACTEMRA [Suspect]
     Indication: RHEUMATOID ARTHRITIS
     Route: 042
     Dates: start: 20110812, end: 20120214
  2. FOSAMAX [Concomitant]
  3. LOSEC (CANADA) [Concomitant]
  4. MULTI-VITAMINS [Concomitant]
  5. PREDNISONE TAB [Concomitant]
  6. SYNTHROID [Concomitant]
  7. VITAMIN D [Concomitant]

REACTIONS (1)
  - SPLENOMEGALY [None]
